FAERS Safety Report 5161962-0 (Version None)
Quarter: 2006Q4

REPORT INFORMATION
  Report Type: 
  Country: None (occurrence: None)
  Receive Date: 20061130
  Receipt Date: 20061024
  Transmission Date: 20070319
  Serious: Yes (Hospitalization)
  Sender: FDA-Public Use
  Company Number: US-ELI_LILLY_AND_COMPANY-US200610004388

PATIENT
  Age: 27 Year
  Sex: Female
  Weight: 132.43 kg

DRUGS (7)
  1. HUMALOG [Suspect]
     Indication: DIABETES MELLITUS NON-INSULIN-DEPENDENT
     Dosage: 10 U, 2/D
  2. HUMULIN N [Suspect]
     Indication: DIABETES MELLITUS NON-INSULIN-DEPENDENT
     Dosage: 20 U, 2/D
  3. LEXAPRO                                 /USA/ [Concomitant]
     Dosage: 20 MG, DAILY (1/D)
  4. ADVAIR DISKUS 100/50 [Concomitant]
     Dosage: UNK, 2/D
  5. RESTORIL [Concomitant]
     Dosage: 30 MG, EACH EVENING
  6. METFORMIN [Concomitant]
     Dosage: 750 MG, DAILY (1/D)
  7. PREDNISONE TAB [Concomitant]
     Dates: end: 20060901

REACTIONS (9)
  - DIARRHOEA [None]
  - HEADACHE [None]
  - HYPOGLYCAEMIA [None]
  - LEUKOCYTOSIS [None]
  - MENINGITIS ASEPTIC [None]
  - MENINGITIS VIRAL [None]
  - NAUSEA [None]
  - PYREXIA [None]
  - VOMITING [None]
